FAERS Safety Report 8340508-X (Version None)
Quarter: 2012Q2

REPORT INFORMATION
  Report Type: 
  Country: None (occurrence: None)
  Receive Date: 20120507
  Receipt Date: 20090821
  Transmission Date: 20120825
  Serious: Yes (Hospitalization)
  Sender: FDA-Public Use
  Company Number: US-TEVA-2009009320

PATIENT
  Sex: Male
  Weight: 78.542 kg

DRUGS (8)
  1. ASPIRIN [Concomitant]
     Dosage: 325 MILLIGRAM;
     Route: 048
     Dates: start: 20020101
  2. GLIMEPIRIDE [Concomitant]
     Indication: DIABETES MELLITUS
     Dosage: 6 MILLIGRAM;
     Route: 048
     Dates: start: 20080101
  3. TREANDA [Suspect]
     Indication: CHRONIC LYMPHOCYTIC LEUKAEMIA
     Route: 041
     Dates: start: 20090201
  4. TREANDA [Suspect]
     Indication: LYMPHOMA
  5. TOPROL-XL [Concomitant]
     Dosage: 50 MILLIGRAM;
     Route: 048
     Dates: start: 20020101
  6. FLOMAX [Concomitant]
     Indication: PROSTATIC DISORDER
  7. ISOSORBIDE DINITRATE [Concomitant]
     Dosage: 60 MILLIGRAM;
     Route: 048
     Dates: start: 20020101
  8. FLOMAX [Concomitant]
     Indication: BLADDER DISORDER
     Dosage: .4 MILLIGRAM;
     Route: 048

REACTIONS (1)
  - PYREXIA [None]
